FAERS Safety Report 7472907 (Version 6)
Quarter: 2013Q4

REPORT INFORMATION
  Report Type: Spontaneous
  Country: US (occurrence: US)
  Receive Date: 20100714
  Receipt Date: 20131209
  Transmission Date: 20140711
  Serious: Yes (Hospitalization, Other)
  Sender: FDA-Public Use
  Company Number: US-BAYER-201027657NA

PATIENT
  Age: 21 Year
  Sex: Female
  Weight: 77.1 kg

DRUGS (28)
  1. YAZ [Suspect]
     Indication: MENSTRUAL CYCLE MANAGEMENT
     Dosage: UNK UNK, UNK
     Route: 048
     Dates: start: 200603, end: 20090715
  2. YAZ [Suspect]
     Indication: ORAL CONTRACEPTION
  3. YASMIN [Suspect]
     Indication: MENSTRUAL CYCLE MANAGEMENT
     Dosage: UNK UNK, UNK
     Route: 048
     Dates: start: 200603, end: 200910
  4. YASMIN [Suspect]
     Indication: ORAL CONTRACEPTION
  5. OCELLA [Suspect]
     Indication: MENSTRUAL CYCLE MANAGEMENT
     Dosage: UNK UNK, UNK
     Route: 048
     Dates: start: 200603, end: 20090715
  6. OCELLA [Suspect]
     Indication: ORAL CONTRACEPTION
     Dosage: UNK
     Dates: start: 200807, end: 200901
  7. OCELLA [Suspect]
     Indication: MENSTRUAL CYCLE MANAGEMENT
     Dosage: UNK
     Dates: start: 200903, end: 200907
  8. OCELLA [Suspect]
     Indication: MENSTRUAL CYCLE MANAGEMENT
     Dosage: UNK
     Dates: start: 200909
  9. REGLAN [Concomitant]
     Dosage: 10 MG, UNK
  10. BENTYL [Concomitant]
     Dosage: 20 MG, UNK
  11. CYMBALTA [Concomitant]
     Indication: DEPRESSION
     Dosage: 30 MG, UNK
  12. NEXIUM [Concomitant]
     Dosage: 40 MG, UNK
  13. DARVOCET [Concomitant]
  14. ZOFRAN [Concomitant]
  15. MOM [Concomitant]
  16. LORTAB [Concomitant]
  17. MIRALAX [Concomitant]
  18. DILAUDID [Concomitant]
  19. VALIUM [Concomitant]
  20. SEVERAL OTHER DRUGS [Concomitant]
  21. METOCLOPRAMIDE [Concomitant]
     Dosage: 5 MG, UNK
  22. TRAMADOL HYDROCHLORIDE [Concomitant]
  23. ACETAMINOPHEN W/PROPOXYPHENE [Concomitant]
     Indication: PAIN
     Dosage: UNK
     Dates: start: 200812
  24. DICYCLOMINE [Concomitant]
     Indication: ABDOMINAL PAIN UPPER
     Dosage: 10 MG, UNK
  25. NEXIUM [Concomitant]
     Dosage: UNK
     Dates: start: 200809
  26. REGLAN [Concomitant]
     Dosage: UNK
     Dates: start: 200809
  27. MORPHINE [Concomitant]
  28. LACTULOSE [Concomitant]

REACTIONS (16)
  - Cholecystitis chronic [None]
  - Gastrooesophageal reflux disease [Unknown]
  - Cholelithiasis [None]
  - Suicide attempt [None]
  - Bipolar I disorder [None]
  - Convulsion [None]
  - Cholesterosis [None]
  - Anxiety [None]
  - Procedural pain [None]
  - Abdominal pain [None]
  - Vomiting [None]
  - Nausea [None]
  - Abdominal pain upper [None]
  - Back pain [None]
  - Abdominal tenderness [None]
  - Biliary colic [None]
